FAERS Safety Report 22046474 (Version 1)
Quarter: 2023Q1

REPORT INFORMATION
  Report Type: Report from Study
  Country: JP (occurrence: JP)
  Receive Date: 20230228
  Receipt Date: 20230228
  Transmission Date: 20230418
  Serious: Yes (Hospitalization)
  Sender: FDA-Public Use
  Company Number: JP-DSJP-DSJ-2023-107558

PATIENT
  Age: 71 Year
  Sex: Female
  Weight: 44.5 kg

DRUGS (14)
  1. EDOXABAN TOSYLATE [Suspect]
     Active Substance: EDOXABAN TOSYLATE
     Indication: Thrombosis prophylaxis
     Dosage: 30 MG, QD
     Route: 048
     Dates: start: 20230127, end: 20230207
  2. EDOXABAN TOSYLATE [Suspect]
     Active Substance: EDOXABAN TOSYLATE
     Dosage: 30 MG, QD
     Route: 048
     Dates: start: 20230211
  3. ATORVASTATIN CALCIUM [Concomitant]
     Active Substance: ATORVASTATIN CALCIUM
     Indication: Dyslipidaemia
     Dosage: 5 MG, QD
     Route: 048
  4. AMLODIPINE BESYLATE [Concomitant]
     Active Substance: AMLODIPINE BESYLATE
     Indication: Hypertension
     Dosage: 5 MG, QD
     Route: 048
  5. VONOPRAZAN FUMARATE [Concomitant]
     Active Substance: VONOPRAZAN FUMARATE
     Indication: Gastritis prophylaxis
     Dosage: 10 MG, QD
     Route: 048
     Dates: start: 20230125
  6. SPIRONOLACTONE [Concomitant]
     Active Substance: SPIRONOLACTONE
     Indication: Cardiac dysfunction
     Dosage: 25 MG, QD
     Route: 048
     Dates: start: 20230125
  7. MIYA-BM [Concomitant]
     Active Substance: CLOSTRIDIUM BUTYRICUM SPORES STRAIN M-55
     Indication: Constipation
     Dosage: 1 DF, TID
     Route: 048
     Dates: start: 20230125
  8. CELECOXIB [Concomitant]
     Active Substance: CELECOXIB
     Indication: Pain
     Dosage: 100 MG, BID
     Route: 048
     Dates: start: 20230127
  9. AZOSEMIDE [Concomitant]
     Active Substance: AZOSEMIDE
     Indication: Polyuria
     Dosage: 30 MG, QD
     Route: 048
     Dates: start: 20230126
  10. SULPIRIDE [Concomitant]
     Active Substance: SULPIRIDE
     Indication: Insomnia
     Dosage: 50 MG, TID
     Route: 048
     Dates: start: 20230203
  11. TRICHLORMETHIAZIDE [Concomitant]
     Active Substance: TRICHLORMETHIAZIDE
     Indication: Polyuria
     Dosage: 1 MG, QD
     Route: 048
     Dates: start: 20230131
  12. BISOPROLOL [Concomitant]
     Active Substance: BISOPROLOL
     Indication: Cardiac dysfunction
     Dosage: 2 MG, QD
     Dates: start: 20230205
  13. DAYVIGO [Concomitant]
     Active Substance: LEMBOREXANT
     Indication: Insomnia
     Dosage: 5 MG, QD
     Route: 048
     Dates: start: 20230125
  14. SENNOSIDES A AND B [Concomitant]
     Active Substance: SENNOSIDES A AND B
     Indication: Constipation
     Dosage: 12 MG, QD
     Route: 048
     Dates: start: 20230125

REACTIONS (1)
  - Pericardial effusion [Recovered/Resolved]

NARRATIVE: CASE EVENT DATE: 20230209
